FAERS Safety Report 5515652-2 (Version None)
Quarter: 2007Q4

REPORT INFORMATION
  Report Type: 
  Country: None (occurrence: None)
  Receive Date: 20071113
  Receipt Date: 20070726
  Transmission Date: 20080405
  Serious: No
  Sender: FDA-Public Use
  Company Number: A0666536A

PATIENT
  Age: 49 Year
  Sex: Female

DRUGS (8)
  1. COREG [Suspect]
     Dosage: 12.5MG TWICE PER DAY
     Route: 048
  2. COREG CR [Suspect]
     Dosage: 40MG PER DAY
     Route: 048
     Dates: end: 20070626
  3. LYRICA [Concomitant]
  4. FUROSEMIDE [Concomitant]
  5. SPIRONOLACTONE [Concomitant]
  6. PAXIL [Concomitant]
  7. ADVAIR DISKUS 100/50 [Concomitant]
  8. SINGULAIR [Concomitant]

REACTIONS (1)
  - CHEST PAIN [None]
